FAERS Safety Report 4319908-0 (Version None)
Quarter: 2004Q1

REPORT INFORMATION
  Report Type: 
  Country: None (occurrence: None)
  Receive Date: 20040316
  Receipt Date: 20040309
  Transmission Date: 20041129
  Serious: Yes (Hospitalization)
  Sender: FDA-Public Use
  Company Number: 2004202852US

PATIENT
  Age: 32 Year
  Sex: Male

DRUGS (1)
  1. XANAX [Suspect]
     Indication: SLEEP DISORDER
     Dosage: 1.5 MG, ORAL
     Route: 048

REACTIONS (4)
  - ANXIETY [None]
  - INSOMNIA [None]
  - READING DISORDER [None]
  - VOMITING [None]
